FAERS Safety Report 6875020-8 (Version None)
Quarter: 2010Q3

REPORT INFORMATION
  Report Type: 
  Country: None (occurrence: None)
  Receive Date: 20100727
  Receipt Date: 20100722
  Transmission Date: 20110219
  Serious: Yes (Death, Life-Threatening, Hospitalization, Disabling, Other)
  Sender: FDA-Public Use
  Company Number: IN-AMGEN-UK271220

PATIENT
  Sex: Female
  Weight: 39 kg

DRUGS (4)
  1. DENOSUMAB [Suspect]
     Indication: METASTASES TO BONE
     Route: 058
     Dates: start: 20070802, end: 20080214
  2. ZOMETA [Suspect]
     Indication: METASTASES TO BONE
     Route: 042
     Dates: start: 20070802, end: 20080214
  3. LETROZOLE [Concomitant]
     Dates: start: 20070701
  4. PARACETAMOL [Concomitant]

REACTIONS (9)
  - ACUTE HEPATIC FAILURE [None]
  - BACK PAIN [None]
  - COAGULOPATHY [None]
  - HAEMATEMESIS [None]
  - HYPOTENSION [None]
  - RESPIRATORY DISTRESS [None]
  - THROMBOCYTOPENIA [None]
  - TRACHEAL HAEMORRHAGE [None]
  - VOMITING [None]
